FAERS Safety Report 16970423 (Version 1)
Quarter: 2019Q4

REPORT INFORMATION
  Report Type: Spontaneous
  Country: US (occurrence: US)
  Receive Date: 20190912
  Receipt Date: 20190912
  Transmission Date: 20200122
  Serious: Yes (Other)
  Sender: FDA-Public Use
  Company Number: None

PATIENT
  Age: 59 Year
  Sex: Female
  Weight: 65.77 kg

DRUGS (7)
  1. SERTRALINE [Concomitant]
     Active Substance: SERTRALINE HYDROCHLORIDE
  2. ESTRADIOL. [Concomitant]
     Active Substance: ESTRADIOL
  3. PHENYLEPHRINE [Concomitant]
     Active Substance: PHENYLEPHRINE HYDROCHLORIDE
  4. MONTELUKAST [Concomitant]
     Active Substance: MONTELUKAST SODIUM
  5. SERTRALINE [Suspect]
     Active Substance: SERTRALINE HYDROCHLORIDE
     Indication: DEPRESSION
     Dosage: ?          QUANTITY:1.5 DF DOSAGE FORM;?
     Route: 048
     Dates: start: 20190820, end: 20190827
  6. PROGESTERONE. [Concomitant]
     Active Substance: PROGESTERONE
  7. RANITIDINE. [Concomitant]
     Active Substance: RANITIDINE

REACTIONS (9)
  - Chest discomfort [None]
  - Mood swings [None]
  - Fatigue [None]
  - Depression [None]
  - Feeling of despair [None]
  - Sensory disturbance [None]
  - Product substitution issue [None]
  - Decreased interest [None]
  - Anxiety [None]

NARRATIVE: CASE EVENT DATE: 20190827
